FAERS Safety Report 6231971-9 (Version None)
Quarter: 2009Q2

REPORT INFORMATION
  Report Type: 
  Country: None (occurrence: None)
  Receive Date: 20090612
  Receipt Date: 20090528
  Transmission Date: 20091009
  Serious: Yes (Hospitalization)
  Sender: FDA-Public Use
  Company Number: 000961

PATIENT
  Sex: Female

DRUGS (1)
  1. ROTIGOTINE (ROTIGOTINE) [Suspect]
     Indication: PARKINSON'S DISEASE
     Dosage: 12 MG QD TRANSDERMAL
     Route: 062
     Dates: start: 20081031

REACTIONS (2)
  - FALL [None]
  - JOINT DISLOCATION [None]
